FAERS Safety Report 17827972 (Version 1)
Quarter: 2020Q2

REPORT INFORMATION
  Report Type: Spontaneous
  Country: JP (occurrence: JP)
  Receive Date: 20200527
  Receipt Date: 20200527
  Transmission Date: 20200714
  Serious: Yes (Other)
  Sender: FDA-Public Use
  Company Number: JP-ADVANZ PHARMA-202005005792

PATIENT

DRUGS (1)
  1. ZONISAMIDE. [Suspect]
     Active Substance: ZONISAMIDE
     Indication: FOETAL EXPOSURE DURING PREGNANCY
     Dosage: UNK, TABLETS
     Route: 064

REACTIONS (2)
  - Pulmonary haemorrhage [Unknown]
  - Foetal exposure during pregnancy [Unknown]
